FAERS Safety Report 18026436 (Version 1)
Quarter: 2020Q3

REPORT INFORMATION
  Report Type: Spontaneous
  Country: IT (occurrence: IT)
  Receive Date: 20200715
  Receipt Date: 20200715
  Transmission Date: 20201103
  Serious: Yes (Other)
  Sender: FDA-Public Use
  Company Number: IT-TEVA-2020-IT-1799812

PATIENT
  Age: 39 Year
  Sex: Male

DRUGS (7)
  1. IPILIMUMAB [Suspect]
     Active Substance: IPILIMUMAB
     Indication: METASTATIC MALIGNANT MELANOMA
     Route: 065
  2. PREDNISONE. [Suspect]
     Active Substance: PREDNISONE
     Indication: PSORIATIC ARTHROPATHY
     Dosage: 25 MILLIGRAM DAILY; SUBSEQUENTLY DOSE WAS TAPERED
     Route: 065
  3. NIVOLUMAB [Suspect]
     Active Substance: NIVOLUMAB
     Dosage: RECEIVED TOTAL OF 26 CYCLES
     Route: 065
  4. PREDNISONE. [Suspect]
     Active Substance: PREDNISONE
     Route: 065
  5. METHOTREXATE. [Suspect]
     Active Substance: METHOTREXATE
     Indication: PSORIATIC ARTHROPATHY
     Route: 065
  6. NIVOLUMAB [Suspect]
     Active Substance: NIVOLUMAB
     Indication: METASTATIC MALIGNANT MELANOMA
     Dosage: INITIALLY GIVEN ALONG WITH IPILIMUMAB, LATER MONOTHERAPY STARTED
     Route: 065
  7. SULFASALAZINE. [Suspect]
     Active Substance: SULFASALAZINE
     Indication: PSORIATIC ARTHROPATHY
     Dosage: 2 GRAM DAILY;
     Route: 065

REACTIONS (7)
  - Psoriatic arthropathy [Recovering/Resolving]
  - Platelet count decreased [Recovered/Resolved]
  - Hepatitis [Unknown]
  - Pancreatitis acute [Unknown]
  - Acute kidney injury [Unknown]
  - Myelosuppression [Recovered/Resolved]
  - Drug ineffective [Unknown]
